FAERS Safety Report 4343924-6 (Version None)
Quarter: 2004Q2

REPORT INFORMATION
  Report Type: 
  Country: None (occurrence: None)
  Receive Date: 20040419
  Receipt Date: 20040406
  Transmission Date: 20050107
  Serious: Yes (Hospitalization)
  Sender: FDA-Public Use
  Company Number: US-JNJFOC-20040401313

PATIENT
  Age: 62 Year
  Sex: Female

DRUGS (17)
  1. INFLIXIMAB (INFLIXIMAB, RECOMBINANT) LYOPHILIZED POWDER [Suspect]
     Indication: RHEUMATOID ARTHRITIS
     Dosage: INTRAVENOUS
     Route: 042
     Dates: start: 20010329
  2. INFLIXIMAB (INFLIXIMAB, RECOMBINANT) LYOPHILIZED POWDER [Suspect]
     Indication: RHEUMATOID ARTHRITIS
     Dosage: INTRAVENOUS
     Route: 042
     Dates: start: 20020101
  3. TEMAZEPAM [Concomitant]
  4. PREDNISONE [Concomitant]
  5. PREVACID [Concomitant]
  6. COUMADIN [Concomitant]
  7. ZOLOFT [Concomitant]
  8. LASIX [Concomitant]
  9. K-DUR 10 [Concomitant]
  10. FOLIC ACID [Concomitant]
  11. VALIUM [Concomitant]
  12. OXYCONTIN [Concomitant]
  13. ENBREL [Concomitant]
  14. LEVOXYL [Concomitant]
  15. MULTIVITAMIN (MULTIVITAMINS) [Concomitant]
  16. CALCIUM (CALCIUM) [Concomitant]
  17. B-12 (CYANOCOBALAMIN) [Concomitant]

REACTIONS (7)
  - DEHYDRATION [None]
  - DEPRESSED LEVEL OF CONSCIOUSNESS [None]
  - ELECTROENCEPHALOGRAM ABNORMAL [None]
  - ENCEPHALOPATHY [None]
  - HYPOVOLAEMIA [None]
  - RHABDOMYOLYSIS [None]
  - URINARY TRACT INFECTION [None]
